FAERS Safety Report 4847392-7 (Version None)
Quarter: 2005Q4

REPORT INFORMATION
  Report Type: 
  Country: None (occurrence: None)
  Receive Date: 20051207
  Receipt Date: 20051128
  Transmission Date: 20060501
  Serious: Yes (Other)
  Sender: FDA-Public Use
  Company Number: US-BRISTOL-MYERS SQUIBB COMPANY-13195904

PATIENT
  Age: 68 Year
  Sex: Male

DRUGS (6)
  1. METHOTREXATE SODIUM [Suspect]
  2. PREDNISONE [Concomitant]
  3. VALDECOXIB [Concomitant]
  4. LEVOFLOXACIN [Concomitant]
  5. WARFARIN SODIUM [Concomitant]
  6. CALCIUM GLUCONATE [Concomitant]

REACTIONS (2)
  - HISTOPLASMOSIS DISSEMINATED [None]
  - PANCYTOPENIA [None]
